FAERS Safety Report 18682217 (Version 1)
Quarter: 2020Q4

REPORT INFORMATION
  Report Type: Report from Study
  Country: SE (occurrence: SE)
  Receive Date: 20201230
  Receipt Date: 20201230
  Transmission Date: 20210114
  Serious: Yes (Death, Other)
  Sender: FDA-Public Use
  Company Number: SE-SUN PHARMACEUTICAL INDUSTRIES LTD-2020RR-273358

PATIENT
  Sex: Female

DRUGS (4)
  1. DIAZOXIDE [Suspect]
     Active Substance: DIAZOXIDE
     Indication: PANCREATIC CARCINOMA METASTATIC
     Dosage: 100 MILLIGRAM X 2, UNK
     Route: 065
     Dates: start: 2018
  2. OCTREOTIDE. [Suspect]
     Active Substance: OCTREOTIDE
     Indication: PANCREATIC CARCINOMA METASTATIC
     Dosage: 100 MICROGRAM X 2, UNK
     Route: 058
     Dates: start: 2018
  3. GLUCOSE [Suspect]
     Active Substance: DEXTROSE
     Indication: PRODUCT USED FOR UNKNOWN INDICATION
     Dosage: UNK
     Route: 042
     Dates: start: 2018
  4. PREDNISOLONE. [Suspect]
     Active Substance: PREDNISOLONE
     Indication: PANCREATIC CARCINOMA METASTATIC
     Dosage: 10+20 MG, UNK
     Route: 065

REACTIONS (2)
  - Disease progression [Fatal]
  - Drug ineffective [Unknown]

NARRATIVE: CASE EVENT DATE: 201802
